FAERS Safety Report 6994249-1 (Version None)
Quarter: 2010Q3

REPORT INFORMATION
  Report Type: 
  Country: None (occurrence: None)
  Receive Date: 20100917
  Receipt Date: 20070717
  Transmission Date: 20110219
  Serious: No
  Sender: FDA-Public Use
  Company Number: US-ASTRAZENECA-2006UW27803

PATIENT
  Age: 470 Month
  Sex: Male
  Weight: 113.9 kg

DRUGS (9)
  1. SEROQUEL [Suspect]
     Indication: BIPOLAR DISORDER
     Route: 048
     Dates: start: 20010717, end: 20060818
  2. SEROQUEL [Suspect]
     Indication: PANIC DISORDER
     Route: 048
     Dates: start: 20010717, end: 20060818
  3. SEROQUEL [Suspect]
     Indication: ANXIETY
     Route: 048
     Dates: start: 20010717, end: 20060818
  4. SEROQUEL [Suspect]
     Indication: INSOMNIA
     Route: 048
     Dates: start: 20010717, end: 20060818
  5. DEPAKOTE [Concomitant]
  6. XANAX [Concomitant]
  7. LAMICTAL [Concomitant]
  8. EFFEXOR [Concomitant]
  9. GLUCOPHAGE [Concomitant]
     Indication: TYPE 2 DIABETES MELLITUS

REACTIONS (2)
  - DIABETES MELLITUS [None]
  - OBESITY [None]
